FAERS Safety Report 14167301 (Version 2)
Quarter: 2017Q4

REPORT INFORMATION
  Report Type: Report from Study
  Country: None (occurrence: US)
  Receive Date: 20171108
  Receipt Date: 20171117
  Transmission Date: 20180321
  Serious: No
  Sender: FDA-Public Use
  Company Number: US-ABBVIE-17K-163-2153768-00

PATIENT
  Age: 70 Year
  Sex: Female
  Weight: 58.11 kg

DRUGS (9)
  1. HUMIRA [Suspect]
     Active Substance: ADALIMUMAB
     Indication: CROHN^S DISEASE
     Route: 058
     Dates: start: 201502
  2. LOPERAMIDE [Concomitant]
     Active Substance: LOPERAMIDE
     Indication: CROHN^S DISEASE
  3. ALPHAGAN P [Concomitant]
     Active Substance: BRIMONIDINE TARTRATE
     Indication: BORDERLINE GLAUCOMA
  4. AZATHIOPRINE. [Concomitant]
     Active Substance: AZATHIOPRINE
     Indication: CROHN^S DISEASE
  5. MELOXICAM. [Concomitant]
     Active Substance: MELOXICAM
     Indication: OSTEOARTHRITIS
  6. SYMAX [Concomitant]
     Active Substance: HYOSCYAMINE SULFATE
     Indication: CROHN^S DISEASE
  7. TRAVATAN [Concomitant]
     Active Substance: TRAVOPROST
     Indication: BORDERLINE GLAUCOMA
  8. DORZOLAMIDE/TIMOLOL [Concomitant]
     Active Substance: DORZOLAMIDE\TIMOLOL
     Indication: BORDERLINE GLAUCOMA
  9. LEVOTHYROXINE. [Concomitant]
     Active Substance: LEVOTHYROXINE
     Indication: THYROIDECTOMY

REACTIONS (4)
  - Atrial flutter [Not Recovered/Not Resolved]
  - Dizziness [Not Recovered/Not Resolved]
  - Fatigue [Not Recovered/Not Resolved]
  - Palpitations [Not Recovered/Not Resolved]

NARRATIVE: CASE EVENT DATE: 2016
